FAERS Safety Report 6088046-1 (Version None)
Quarter: 2009Q1

REPORT INFORMATION
  Report Type: 
  Country: None (occurrence: None)
  Receive Date: 20090218
  Receipt Date: 20090210
  Transmission Date: 20090719
  Serious: Yes (Life-Threatening)
  Sender: FDA-Public Use
  Company Number: 2009SP003170

PATIENT
  Age: 81 Year
  Sex: Female
  Weight: 45 kg

DRUGS (13)
  1. TEMODAL [Suspect]
     Indication: GLIOBLASTOMA MULTIFORME
     Dosage: 75 MG/M2;QD;PO
     Route: 048
     Dates: start: 20061214, end: 20061217
  2. DEPAKENE [Suspect]
     Indication: BRAIN NEOPLASM
     Dosage: 200 MG;TID;PO
     Route: 048
     Dates: end: 20061220
  3. ASPIRIN [Concomitant]
  4. URSO 250 [Concomitant]
  5. MARZULENE-S [Concomitant]
  6. SERENACE [Concomitant]
  7. LAXOBERON [Concomitant]
  8. PREDONINE [Concomitant]
  9. DIAZEPAM [Concomitant]
  10. PONSTEL [Concomitant]
  11. ACETAMINOPHEN [Concomitant]
  12. COLDRIN [Concomitant]
  13. VEGETAMIN B (VEGETAMIN A) [Suspect]
     Dosage: 1 DF;HS;PO
     Route: 048
     Dates: start: 20061112, end: 20061220

REACTIONS (1)
  - HEPATIC FUNCTION ABNORMAL [None]
